FAERS Safety Report 6749642-9 (Version None)
Quarter: 2010Q2

REPORT INFORMATION
  Report Type: 
  Country: None (occurrence: None)
  Receive Date: 20100601
  Receipt Date: 20100520
  Transmission Date: 20101027
  Serious: Yes (Other)
  Sender: FDA-Public Use
  Company Number: B0617651A

PATIENT
  Sex: Female
  Weight: 2.4 kg

DRUGS (8)
  1. ZOFRAN [Suspect]
     Indication: NAUSEA
     Dosage: 8MG CYCLIC
     Route: 015
     Dates: start: 20090106, end: 20090217
  2. FLUOROURACIL [Suspect]
     Dosage: 500MGM2 CYCLIC
     Route: 015
     Dates: start: 20090106, end: 20090217
  3. EPIRUBICIN [Suspect]
     Dosage: 100MGM2 CYCLIC
     Route: 015
     Dates: start: 20090106, end: 20090217
  4. CYCLOPHOSPHAMIDE [Suspect]
     Dosage: 500MGM2 CYCLIC
     Route: 015
     Dates: start: 20090106
  5. ZURCAL [Suspect]
     Indication: PROPHYLAXIS
     Dosage: 20MG PER DAY
     Route: 015
     Dates: start: 20090101, end: 20090101
  6. SOLU-MEDROL [Concomitant]
  7. FERRO SANOL [Concomitant]
     Dosage: 1UNIT PER DAY
     Dates: start: 20090101
  8. ELEVIT [Concomitant]
     Dates: start: 20080101, end: 20090101

REACTIONS (5)
  - DRUG EXPOSURE DURING PREGNANCY [None]
  - FOETAL GROWTH RETARDATION [None]
  - HYPOGLYCAEMIA NEONATAL [None]
  - NEONATAL HYPOTENSION [None]
  - NEONATAL RESPIRATORY DISTRESS SYNDROME [None]
